FAERS Safety Report 13478969 (Version 1)
Quarter: 2017Q2

REPORT INFORMATION
  Report Type: Spontaneous
  Country: US (occurrence: US)
  Receive Date: 20170425
  Receipt Date: 20170425
  Transmission Date: 20170830
  Serious: Yes (Life-Threatening, Other)
  Sender: FDA-Public Use
  Company Number: None

PATIENT
  Age: 64 Year
  Sex: Female
  Weight: 58.97 kg

DRUGS (5)
  1. OMEPRAZOLE. [Concomitant]
     Active Substance: OMEPRAZOLE
  2. COMPLETE MULTIVTAMIN/MULTIMINERAL SUPPLEMENT [Concomitant]
  3. LEVOTHYROXIN [Concomitant]
     Active Substance: LEVOTHYROXINE
  4. PRAVASTATIN. [Concomitant]
     Active Substance: PRAVASTATIN
  5. BD E-Z SCRUB 107 [Suspect]
     Active Substance: CHLORHEXIDINE GLUCONATE
     Indication: CATHETERISATION CARDIAC
     Route: 061
     Dates: start: 20170314, end: 20170314

REACTIONS (6)
  - Rash pruritic [None]
  - Fall [None]
  - Blister [None]
  - Peripheral swelling [None]
  - Pain in extremity [None]
  - Arthralgia [None]

NARRATIVE: CASE EVENT DATE: 20170314
